FAERS Safety Report 8646048 (Version 7)
Quarter: 2017Q1

REPORT INFORMATION
  Report Type: Spontaneous
  Country: US (occurrence: US)
  Receive Date: 20120702
  Receipt Date: 20170124
  Transmission Date: 20170429
  Serious: Yes (Hospitalization, Disabling, Other)
  Sender: FDA-Public Use
  Company Number: US-009507513-1206USA04953

PATIENT
  Sex: Female
  Weight: 76.19 kg

DRUGS (4)
  1. ALENDRONATE SODIUM. [Suspect]
     Active Substance: ALENDRONATE SODIUM
     Indication: PRODUCT USED FOR UNKNOWN INDICATION
     Dosage: 70 MG, QW
     Route: 065
     Dates: start: 20080303
  2. FOSAMAX [Suspect]
     Active Substance: ALENDRONATE SODIUM
     Indication: OSTEOPOROSIS PROPHYLAXIS
     Dosage: 70 MG, QW
     Route: 048
     Dates: end: 20100309
  3. CENTRUM (MINERALS (UNSPECIFIED) (+) VITAMINS (UNSPECIFIED)) [Concomitant]
     Indication: PRODUCT USED FOR UNKNOWN INDICATION
     Dosage: UNK
     Route: 065
     Dates: start: 1983
  4. FOSAMAX [Suspect]
     Active Substance: ALENDRONATE SODIUM
     Dosage: UNK
     Route: 048
     Dates: start: 199904

REACTIONS (57)
  - Femur fracture [Not Recovered/Not Resolved]
  - Osteoarthritis [Unknown]
  - Cardiomyopathy [Unknown]
  - Haemorrhoids [Unknown]
  - Impaired gastric emptying [Unknown]
  - Vertigo positional [Unknown]
  - Pulmonary oedema [Unknown]
  - Intramedullary rod insertion [Unknown]
  - Cardiac failure congestive [Unknown]
  - Biopsy [Unknown]
  - Depression [Unknown]
  - Osteoarthritis [Unknown]
  - Cough [Unknown]
  - Pulmonary mass [Unknown]
  - Rosacea [Unknown]
  - Scar [Unknown]
  - Haemorrhagic anaemia [Recovered/Resolved]
  - Femur fracture [Recovered/Resolved]
  - Urinary retention postoperative [Recovered/Resolved]
  - Road traffic accident [Unknown]
  - Urinary tract infection [Recovered/Resolved]
  - Decreased appetite [Unknown]
  - Aspiration pleural cavity [Unknown]
  - Dysphagia [Unknown]
  - Acute myocardial infarction [Unknown]
  - Deep vein thrombosis [Unknown]
  - Coronary artery bypass [Unknown]
  - Catheterisation cardiac [Unknown]
  - Pleural effusion [Unknown]
  - Ear discomfort [Unknown]
  - Leukocytosis [Recovered/Resolved]
  - Knee operation [Unknown]
  - Musculoskeletal chest pain [Unknown]
  - Pruritus [Unknown]
  - Osteoporosis [Not Recovered/Not Resolved]
  - Multiple fractures [Not Recovered/Not Resolved]
  - Acute kidney injury [Recovered/Resolved]
  - Stress fracture [Unknown]
  - Urinary tract infection enterococcal [Recovered/Resolved]
  - Compression fracture [Unknown]
  - Transfusion [Recovered/Resolved]
  - Dyspnoea [Unknown]
  - Spinal compression fracture [Unknown]
  - Coronary artery disease [Unknown]
  - Obsessive-compulsive disorder [Unknown]
  - Hyperglycaemia [Unknown]
  - Vertebroplasty [Unknown]
  - Constipation [Unknown]
  - Low turnover osteopathy [Not Recovered/Not Resolved]
  - Depression [Unknown]
  - Hypercholesterolaemia [Unknown]
  - Hypertension [Unknown]
  - Cardiac disorder [Unknown]
  - Interstitial lung disease [Unknown]
  - Hypoglycaemia [Unknown]
  - Hiatus hernia [Unknown]
  - Nausea [Recovered/Resolved]

NARRATIVE: CASE EVENT DATE: 2001
